FAERS Safety Report 8390142-0 (Version None)
Quarter: 2012Q2

REPORT INFORMATION
  Report Type: 
  Country: None (occurrence: None)
  Receive Date: 20120529
  Receipt Date: 20120524
  Transmission Date: 20120825
  Serious: Yes (Other)
  Sender: FDA-Public Use
  Company Number: BR-PFIZER INC-2012006006

PATIENT
  Age: 61 Year
  Sex: Male

DRUGS (2)
  1. VARENICLINE TARTRATE [Suspect]
     Indication: TOBACCO USER
     Dosage: UNK
     Route: 048
     Dates: start: 20120102, end: 20120101
  2. VARENICLINE TARTRATE [Suspect]
     Dosage: 1 MG, 2X/DAY
     Route: 048
     Dates: start: 20120101, end: 20120101

REACTIONS (3)
  - AGEUSIA [None]
  - ANOSMIA [None]
  - NERVOUSNESS [None]
